FAERS Safety Report 5457009-9 (Version None)
Quarter: 2007Q3

REPORT INFORMATION
  Report Type: 
  Country: None (occurrence: None)
  Receive Date: 20070918
  Receipt Date: 20070430
  Transmission Date: 20080115
  Serious: Yes (Other)
  Sender: FDA-Public Use
  Company Number: US-ASTRAZENECA-2006UW27662

PATIENT
  Age: 38 Year
  Sex: Female
  Weight: 72.7 kg

DRUGS (3)
  1. SEROQUEL [Suspect]
     Indication: DEPRESSION
     Route: 048
     Dates: start: 20030101
  2. ABILIFY [Concomitant]
  3. TRAZODONE HCL [Concomitant]

REACTIONS (2)
  - DIABETES MELLITUS [None]
  - EPILEPSY [None]
